FAERS Safety Report 5507306-3 (Version None)
Quarter: 2007Q4

REPORT INFORMATION
  Report Type: 
  Country: None (occurrence: None)
  Receive Date: 20071102
  Receipt Date: 20071024
  Transmission Date: 20080405
  Serious: Yes (Death, Hospitalization)
  Sender: FDA-Public Use
  Company Number: WAES 0710USA05461

PATIENT
  Age: 69 Year
  Sex: Male

DRUGS (15)
  1. CANCIDAS [Suspect]
     Indication: SYSTEMIC CANDIDA
     Dosage: 70 MG/1X IV, 50 MG/DAILY IV
     Route: 042
     Dates: start: 20070910, end: 20070910
  2. CANCIDAS [Suspect]
     Indication: SYSTEMIC CANDIDA
     Dosage: 70 MG/1X IV, 50 MG/DAILY IV
     Route: 042
     Dates: start: 20070911, end: 20070927
  3. TRAMADOL HCL [Concomitant]
  4. CORUNO [Concomitant]
  5. LITICON [Concomitant]
  6. TAVANIC [Concomitant]
  7. TAZOCIN [Concomitant]
  8. XANAX [Concomitant]
  9. ZOVIRAX [Concomitant]
  10. ALPRAZOLAM [Concomitant]
  11. AMIKACIN SULFATE [Concomitant]
  12. HEPARIN [Concomitant]
  13. LINEZOLID [Concomitant]
  14. MEROPENEM [Concomitant]
  15. VORICONAZOLE [Concomitant]

REACTIONS (4)
  - GENERAL PHYSICAL HEALTH DETERIORATION [None]
  - KLEBSIELLA INFECTION [None]
  - NEUTROPENIA [None]
  - STAPHYLOCOCCAL BACTERAEMIA [None]
